FAERS Safety Report 14282830 (Version 1)
Quarter: 2017Q4

REPORT INFORMATION
  Report Type: Report from Study
  Country: US (occurrence: US)
  Receive Date: 20171213
  Receipt Date: 20171213
  Transmission Date: 20180321
  Serious: Yes (Other)
  Sender: FDA-Public Use
  Company Number: US-GILEAD-2017-0309557

PATIENT
  Age: 80 Year
  Sex: Female

DRUGS (1)
  1. RANOLAZINE. [Suspect]
     Active Substance: RANOLAZINE
     Indication: MYOCARDIAL FIBROSIS
     Dosage: 500 MG, UNK
     Route: 048
     Dates: start: 201711, end: 201712

REACTIONS (8)
  - Burn oral cavity [Unknown]
  - Off label use [Recovered/Resolved]
  - Airway burns [Unknown]
  - Choking [Unknown]
  - Dysphagia [Unknown]
  - Myocardial fibrosis [Unknown]
  - Wrong technique in product usage process [Unknown]
  - Product size issue [Unknown]
